FAERS Safety Report 8839545 (Version 1)
Quarter: 2012Q4

REPORT INFORMATION
  Report Type: 
  Country: CA (occurrence: CA)
  Receive Date: 20121015
  Receipt Date: 20121015
  Transmission Date: 20130627
  Serious: Yes (Death, Hospitalization, Other)
  Sender: FDA-Public Use
  Company Number: PHHY2012CA036050

PATIENT
  Age: 83 Year
  Sex: Female

DRUGS (1)
  1. ZOMETA [Suspect]
     Indication: RENAL CELL CARCINOMA
     Dosage: 3 mg, every 8 weeks
     Route: 042
     Dates: start: 20120301, end: 20120809

REACTIONS (14)
  - Death [Fatal]
  - Hypernatraemia [Unknown]
  - Blood pressure systolic increased [Unknown]
  - Inflammation [Unknown]
  - Injection site extravasation [Unknown]
  - Injection site inflammation [Unknown]
  - Pain in extremity [Unknown]
  - Back pain [Unknown]
  - Dehydration [Unknown]
  - Muscle spasms [Unknown]
  - Rash [Unknown]
  - Erythema [Unknown]
  - Pruritus [Unknown]
  - Malaise [Unknown]
